FAERS Safety Report 7685934-7 (Version None)
Quarter: 2011Q3

REPORT INFORMATION
  Report Type: 
  Country: None (occurrence: None)
  Receive Date: 20110816
  Receipt Date: 20110803
  Transmission Date: 20111222
  Serious: Yes (Hospitalization)
  Sender: FDA-Public Use
  Company Number: PHHO2011CH13279

PATIENT
  Sex: Male
  Weight: 89.2 kg

DRUGS (2)
  1. CERTICAN [Suspect]
     Indication: LUNG TRANSPLANT
     Dosage: 0.125 MG, UNK
     Route: 048
     Dates: start: 20080709
  2. CYCLOSPORINE [Suspect]
     Indication: LUNG TRANSPLANT
     Dosage: UNK

REACTIONS (1)
  - FLUID OVERLOAD [None]
